FAERS Safety Report 17169147 (Version 1)
Quarter: 2019Q4

REPORT INFORMATION
  Report Type: Spontaneous
  Country: US (occurrence: US)
  Receive Date: 20191217
  Receipt Date: 20191217
  Transmission Date: 20200122
  Serious: Yes (Life-Threatening, Disabling)
  Sender: FDA-Public Use
  Company Number: None

PATIENT
  Age: 64 Year
  Sex: Female

DRUGS (1)
  1. PROLIA [Suspect]
     Active Substance: DENOSUMAB
     Indication: OSTEOPOROSIS
     Dosage: ?          OTHER FREQUENCY:EVERY 6 MONTHS;?
     Route: 058
     Dates: start: 20150102, end: 20190822

REACTIONS (15)
  - Chronic obstructive pulmonary disease [None]
  - Weight decreased [None]
  - Alopecia [None]
  - Musculoskeletal disorder [None]
  - Hypertension [None]
  - Back pain [None]
  - Vision blurred [None]
  - Pain in jaw [None]
  - Nausea [None]
  - Tooth loss [None]
  - Headache [None]
  - Panic attack [None]
  - Sleep terror [None]
  - Ulcer [None]
  - Cardiac neoplasm unspecified [None]

NARRATIVE: CASE EVENT DATE: 20170801
